FAERS Safety Report 4957667-9 (Version None)
Quarter: 2006Q1

REPORT INFORMATION
  Report Type: 
  Country: None (occurrence: None)
  Receive Date: 20060330
  Receipt Date: 20051004
  Transmission Date: 20060701
  Serious: Yes (Hospitalization, Other)
  Sender: FDA-Public Use
  Company Number: PHBS2005AT14592

PATIENT
  Age: 63 Year
  Sex: Female

DRUGS (2)
  1. THALIDOMIDE [Concomitant]
     Dosage: 400 MG/D
     Route: 065
     Dates: start: 20050301
  2. ZOMETA [Suspect]
     Indication: MULTIPLE MYELOMA
     Dosage: 4 MG, QMO
     Route: 065
     Dates: start: 20010101, end: 20050101

REACTIONS (3)
  - BONE TRIMMING [None]
  - OSTEOMYELITIS [None]
  - OSTEONECROSIS [None]
